FAERS Safety Report 21852600 (Version 1)
Quarter: 2023Q1

REPORT INFORMATION
  Report Type: Report from Study
  Country: US (occurrence: US)
  Receive Date: 20230112
  Receipt Date: 20230112
  Transmission Date: 20230417
  Serious: No
  Sender: FDA-Public Use
  Company Number: US-ABBVIE-4235294

PATIENT
  Age: 33 Year
  Sex: Female

DRUGS (4)
  1. SKYRIZI [Suspect]
     Active Substance: RISANKIZUMAB-RZAA
     Indication: Psoriasis
     Route: 058
     Dates: start: 202209
  2. MINOCYCLINE [Concomitant]
     Active Substance: MINOCYCLINE HYDROCHLORIDE
     Indication: Product used for unknown indication
     Dosage: ENTERIC RELEASE
  3. BIOTIN [Concomitant]
     Active Substance: BIOTIN
     Indication: Product used for unknown indication
  4. ADVIL [Concomitant]
     Active Substance: IBUPROFEN
     Indication: Product used for unknown indication

REACTIONS (1)
  - Psoriasis [Unknown]

NARRATIVE: CASE EVENT DATE: 20221101
